FAERS Safety Report 9056274 (Version 2)
Quarter: 2013Q1

REPORT INFORMATION
  Report Type: Spontaneous
  Country: JP (occurrence: JP)
  Receive Date: 20130129
  Receipt Date: 20130129
  Transmission Date: 20140127
  Serious: Yes (Death)
  Sender: FDA-Public Use
  Company Number: JP-ASTRAZENECA-2013SE04916

PATIENT
  Age: 50 Year
  Sex: Female

DRUGS (4)
  1. SEROQUEL [Suspect]
     Indication: MANIA
     Route: 048
  2. SEROQUEL [Suspect]
     Indication: MANIA
     Route: 048
     Dates: start: 20121223
  3. LAMICTAL [Suspect]
     Route: 048
  4. LAMICTAL [Suspect]
     Route: 048
     Dates: start: 20121223

REACTIONS (2)
  - Sudden death [Fatal]
  - Off label use [Unknown]
